FAERS Safety Report 25764228 (Version 1)
Quarter: 2025Q3

REPORT INFORMATION
  Report Type: Spontaneous
  Country: US (occurrence: US)
  Receive Date: 20250905
  Receipt Date: 20250905
  Transmission Date: 20251021
  Serious: No
  Sender: DOMPE FARMACEUTICI
  Company Number: US-FARMAPROD-202501-0004

PATIENT
  Sex: Female

DRUGS (9)
  1. OXERVATE [Suspect]
     Active Substance: CENEGERMIN-BKBJ
     Indication: Neurotrophic keratopathy
     Route: 047
     Dates: start: 20241023, end: 20241217
  2. GLUCOSAMINE CHONDROITIN and MSM [Concomitant]
  3. ARTIFICIAL TEARS [PROPYLENE GLYCOL] [Concomitant]
  4. HYDROCHLOROTHIAZIDE\TRIAMTERENE [Concomitant]
     Active Substance: HYDROCHLOROTHIAZIDE\TRIAMTERENE
  5. ATORVASTATIN CALCIUM [Concomitant]
     Active Substance: ATORVASTATIN CALCIUM
  6. FML [Concomitant]
     Active Substance: FLUOROMETHOLONE
  7. CEQUA [Concomitant]
     Active Substance: CYCLOSPORINE
  8. CEQUA [Concomitant]
     Active Substance: CYCLOSPORINE
  9. VALTREX [Concomitant]
     Active Substance: VALACYCLOVIR HYDROCHLORIDE

REACTIONS (4)
  - Eye pain [Not Recovered/Not Resolved]
  - Facial pain [Not Recovered/Not Resolved]
  - Ocular discomfort [Not Recovered/Not Resolved]
  - Sneezing [Not Recovered/Not Resolved]
